FAERS Safety Report 4310973-3 (Version None)
Quarter: 2004Q1

REPORT INFORMATION
  Report Type: 
  Country: None (occurrence: None)
  Receive Date: 20040304
  Receipt Date: 20040218
  Transmission Date: 20041129
  Serious: Yes (Other)
  Sender: FDA-Public Use
  Company Number: PHBS2004JP02521

PATIENT
  Age: 75 Year
  Sex: Male

DRUGS (1)
  1. LOPRESSOR [Suspect]
     Indication: CARDIOMYOPATHY
     Route: 048

REACTIONS (1)
  - ASTHMA [None]
